FAERS Safety Report 16425453 (Version 2)
Quarter: 2019Q2

REPORT INFORMATION
  Report Type: Spontaneous
  Country: CN (occurrence: CN)
  Receive Date: 20190613
  Receipt Date: 20190619
  Transmission Date: 20190711
  Serious: Yes (Hospitalization)
  Sender: FDA-Public Use
  Company Number: CN-ASTRAZENECA-2019SE85933

PATIENT
  Sex: Female

DRUGS (4)
  1. SYMBICORT [Suspect]
     Active Substance: BUDESONIDE\FORMOTEROL FUMARATE DIHYDRATE
     Indication: ASTHMA
     Dosage: 320 UG TWICE A DAY, ONCE IN THE MORNING AND ONCE IN THE EVENING
     Route: 055
     Dates: start: 20190516, end: 20190519
  2. HYPOGLYCEMIC DRUGS [Concomitant]
     Active Substance: UNSPECIFIED INGREDIENT
  3. TRADITIONAL CHINESE MEDICINE NOS [Concomitant]
     Active Substance: HERBALS
     Indication: ASTHMA
     Route: 048
     Dates: start: 20190516, end: 20190519
  4. TIOTROPIUM BROMIDE [Concomitant]
     Active Substance: TIOTROPIUM BROMIDE
     Indication: ASTHMA
     Dosage: ONCE A DAY INHALATION
     Dates: start: 20190516, end: 20190519

REACTIONS (5)
  - Heart rate irregular [Unknown]
  - Myalgia [Unknown]
  - Back pain [Unknown]
  - Hyperhidrosis [Unknown]
  - Chest pain [Unknown]

NARRATIVE: CASE EVENT DATE: 20190519
